FAERS Safety Report 6126932-4 (Version None)
Quarter: 2009Q1

REPORT INFORMATION
  Report Type: 
  Country: None (occurrence: None)
  Receive Date: 20090320
  Receipt Date: 20090216
  Transmission Date: 20090719
  Serious: No
  Sender: FDA-Public Use
  Company Number: US-ABBOTT-09P-163-0557587-00

PATIENT
  Sex: Female
  Weight: 90.8 kg

DRUGS (2)
  1. ERYTHROMYCIN [Suspect]
     Indication: HAEMORRHOID OPERATION
     Dosage: CAN'T REMEMBER STRENGTH
     Route: 048
     Dates: start: 19870101, end: 19870101
  2. ERYTHROMYCIN [Suspect]
     Indication: PROPHYLAXIS

REACTIONS (2)
  - CHEST PAIN [None]
  - DYSPNOEA [None]
